FAERS Safety Report 16069688 (Version 2)
Quarter: 2019Q1

REPORT INFORMATION
  Report Type: Spontaneous
  Country: US (occurrence: US)
  Receive Date: 20190314
  Receipt Date: 20190328
  Transmission Date: 20190418
  Serious: Yes (Hospitalization, Other)
  Sender: FDA-Public Use
  Company Number: US-009507513-1903USA003095

PATIENT
  Sex: Female

DRUGS (1)
  1. NUVARING [Suspect]
     Active Substance: ETHINYL ESTRADIOL\ETONOGESTREL
     Indication: METRORRHAGIA
     Dosage: 1 DOSAGE FORM
     Route: 067
     Dates: start: 20180301, end: 20180322

REACTIONS (11)
  - Syncope [Unknown]
  - Fall [Unknown]
  - Ecchymosis [Unknown]
  - Head injury [Unknown]
  - Pulmonary embolism [Recovering/Resolving]
  - Product use in unapproved indication [Recovered/Resolved]
  - Conjunctival haemorrhage [Unknown]
  - Peripheral swelling [Unknown]
  - Pain in extremity [Unknown]
  - Vision blurred [Unknown]
  - Menorrhagia [Unknown]

NARRATIVE: CASE EVENT DATE: 20180301
